FAERS Safety Report 6148833-8 (Version None)
Quarter: 2009Q2

REPORT INFORMATION
  Report Type: 
  Country: None (occurrence: None)
  Receive Date: 20090406
  Receipt Date: 20090324
  Transmission Date: 20091009
  Serious: Yes (Death)
  Sender: FDA-Public Use
  Company Number: 2009AP001035

PATIENT
  Age: 38 Year
  Sex: Female

DRUGS (9)
  1. PAROXETINE HCL [Suspect]
     Indication: ANXIETY
     Dosage: 20 MG;PO P 10 MG;PO;QD
     Route: 048
     Dates: start: 20020101, end: 20060101
  2. PAROXETINE HCL [Suspect]
     Indication: ANXIETY
     Dosage: 20 MG;PO P 10 MG;PO;QD
     Route: 048
     Dates: start: 20060101
  3. AMOXICILLIN [Concomitant]
  4. CLAVULANATE POTASSIUM (CLAVULANATE POTASSIUM) [Concomitant]
  5. DIHYDROCODEINE BITARTRATE INJ [Concomitant]
  6. ACETAMINOPHEN [Concomitant]
  7. PREDNISOLONE [Concomitant]
  8. PANTOPRAZOLE SODIUM [Concomitant]
  9. BECLOMETHASONE DIPROPIONATE [Concomitant]

REACTIONS (6)
  - ARRHYTHMIA [None]
  - ARTERIOSPASM CORONARY [None]
  - ASTHMA [None]
  - LOWER RESPIRATORY TRACT INFECTION [None]
  - PANIC ATTACK [None]
  - WITHDRAWAL SYNDROME [None]
